FAERS Safety Report 4740122-9 (Version None)
Quarter: 2005Q3

REPORT INFORMATION
  Report Type: 
  Country: None (occurrence: None)
  Receive Date: 20050810
  Receipt Date: 20050201
  Transmission Date: 20060218
  Serious: No
  Sender: FDA-Public Use
  Company Number: US-GLAXOSMITHKLINE-A0543274A

PATIENT
  Sex: Male

DRUGS (2)
  1. PAXIL [Suspect]
     Indication: ANXIETY
     Dosage: 5MG UNKNOWN
     Route: 048
  2. KLONOPIN [Concomitant]

REACTIONS (2)
  - ANXIETY [None]
  - OBSESSIVE THOUGHTS [None]
